FAERS Safety Report 24917420 (Version 1)
Quarter: 2025Q1

REPORT INFORMATION
  Report Type: Spontaneous
  Country: US (occurrence: None)
  Receive Date: 20250203
  Receipt Date: 20250203
  Transmission Date: 20250409
  Serious: Yes (Hospitalization)
  Sender: FDA-CTU
  Company Number: None

PATIENT
  Age: 32 Year
  Sex: Male
  Weight: 64.8 kg

DRUGS (1)
  1. CABOTEGRAVIR [Suspect]
     Active Substance: CABOTEGRAVIR
     Indication: Prophylaxis against HIV infection
     Route: 030
     Dates: start: 20250130, end: 20250130

REACTIONS (9)
  - Pain in extremity [None]
  - Back pain [None]
  - Arthralgia [None]
  - Neck pain [None]
  - Photophobia [None]
  - Pain [None]
  - Muscle spasms [None]
  - Dyspnoea [None]
  - Gait disturbance [None]

NARRATIVE: CASE EVENT DATE: 20250130
